FAERS Safety Report 11118687 (Version 2)
Quarter: 2015Q3

REPORT INFORMATION
  Report Type: Spontaneous
  Country: JP (occurrence: JP)
  Receive Date: 20150518
  Receipt Date: 20150708
  Transmission Date: 20151125
  Serious: Yes (Life-Threatening, Hospitalization, Other)
  Sender: FDA-Public Use
  Company Number: JP-ELI_LILLY_AND_COMPANY-JP201505004126

PATIENT
  Sex: Male

DRUGS (1)
  1. FORTEO [Suspect]
     Active Substance: TERIPARATIDE
     Indication: PRODUCT USED FOR UNKNOWN INDICATION
     Dosage: UNK
     Route: 058
     Dates: start: 20150415, end: 20150503

REACTIONS (6)
  - Rash [Unknown]
  - Gastrointestinal haemorrhage [Unknown]
  - Urinary bladder haemorrhage [Unknown]
  - Epistaxis [Unknown]
  - Thrombocytopenia [Not Recovered/Not Resolved]
  - Back pain [Not Recovered/Not Resolved]
